FAERS Safety Report 18201773 (Version 1)
Quarter: 2020Q3

REPORT INFORMATION
  Report Type: Spontaneous
  Country: US (occurrence: US)
  Receive Date: 20200826
  Receipt Date: 20200826
  Transmission Date: 20201103
  Serious: Yes (Hospitalization)
  Sender: FDA-Public Use
  Company Number: None

PATIENT
  Age: 30 Year
  Sex: Female
  Weight: 58.6 kg

DRUGS (1)
  1. PACLITAXEL 50 ML VIAL [Suspect]
     Active Substance: PACLITAXEL
     Indication: BREAST CANCER
     Dosage: OTHER FREQUENCY:WEEKLY;?
     Route: 042
     Dates: start: 20200803

REACTIONS (2)
  - Throat tightness [None]
  - Dyspnoea [None]

NARRATIVE: CASE EVENT DATE: 20200824
